FAERS Safety Report 8856125 (Version 1)
Quarter: 2012Q4

REPORT INFORMATION
  Report Type: Spontaneous
  Country: US (occurrence: None)
  Receive Date: 20121022
  Receipt Date: 20121022
  Transmission Date: 20130627
  Serious: No
  Sender: FDA-Public Use
  Company Number: None

PATIENT
  Sex: Female

DRUGS (2)
  1. ATORVASTATIN [Suspect]
     Indication: HYPERTENSION
     Route: 048
  2. ATORVASTATIN [Suspect]
     Indication: ARTERIOSCLEROTIC CARDIOVASCULAR DISEASE
     Route: 048

REACTIONS (1)
  - Rash [None]
